FAERS Safety Report 9625638 (Version 2)
Quarter: 2013Q4

REPORT INFORMATION
  Report Type: Spontaneous
  Country: AU (occurrence: AU)
  Receive Date: 20131016
  Receipt Date: 20131024
  Transmission Date: 20140711
  Serious: Yes (Other)
  Sender: FDA-Public Use
  Company Number: AU-RANBAXY-2013RR-74091

PATIENT
  Age: 42 Year
  Sex: Female

DRUGS (1)
  1. ATORVASTATIN [Suspect]
     Indication: PRODUCT USED FOR UNKNOWN INDICATION
     Dosage: 40 MG
     Route: 065

REACTIONS (1)
  - Rhabdomyolysis [Recovered/Resolved]
